FAERS Safety Report 7636705-9 (Version None)
Quarter: 2011Q3

REPORT INFORMATION
  Report Type: 
  Country: None (occurrence: None)
  Receive Date: 20110719
  Receipt Date: 20110708
  Transmission Date: 20111222
  Serious: Yes (Life-Threatening, Hospitalization)
  Sender: FDA-Public Use
  Company Number: 2011US000061

PATIENT
  Age: 49 Year
  Sex: Male

DRUGS (7)
  1. CATAPRES [Concomitant]
  2. VERAPAMIL [Concomitant]
  3. METOPROLOL TARTRATE [Concomitant]
  4. INSULIN [Concomitant]
  5. ENTEREG [Suspect]
     Indication: POSTOPERATIVE ILEUS
     Dosage: 12 MG, 1X, PO
     Route: 048
     Dates: start: 20110503, end: 20110503
  6. LISINOPRIL [Concomitant]
  7. ZANTAC [Concomitant]

REACTIONS (11)
  - HYPOTENSION [None]
  - BLOOD CREATININE INCREASED [None]
  - CARDIAC ARREST [None]
  - BLOOD ALBUMIN DECREASED [None]
  - HYPERKALAEMIA [None]
  - OPERATIVE HAEMORRHAGE [None]
  - BLOOD UREA INCREASED [None]
  - BRADYCARDIA [None]
  - ATRIOVENTRICULAR BLOCK FIRST DEGREE [None]
  - PULSELESS ELECTRICAL ACTIVITY [None]
  - ELECTROCARDIOGRAM QT PROLONGED [None]
